FAERS Safety Report 14567174 (Version 1)
Quarter: 2018Q1

REPORT INFORMATION
  Report Type: Spontaneous
  Country: US (occurrence: US)
  Receive Date: 20180222
  Receipt Date: 20180222
  Transmission Date: 20180509
  Serious: Yes (Hospitalization)
  Sender: FDA-Public Use
  Company Number: None

PATIENT
  Age: 49 Year
  Sex: Female

DRUGS (8)
  1. PANTOPRAZOLE [Concomitant]
     Active Substance: PANTOPRAZOLE
  2. NOVOLOG [Concomitant]
     Active Substance: INSULIN ASPART
  3. MYCOPHENOLIC 100MG DR TAB [Suspect]
     Active Substance: MYCOPHENOLIC ACID
     Indication: LIVER TRANSPLANT
     Route: 048
     Dates: start: 201802
  4. TACROLIMUS 1MG CAP [Suspect]
     Active Substance: TACROLIMUS
     Indication: LIVER TRANSPLANT
     Route: 048
     Dates: start: 201802
  5. ALLOPURINOL. [Concomitant]
     Active Substance: ALLOPURINOL
  6. PREDNISONE. [Concomitant]
     Active Substance: PREDNISONE
  7. VALGANCICLOV [Concomitant]
  8. LANTUS [Concomitant]
     Active Substance: INSULIN GLARGINE

REACTIONS (1)
  - Transplant rejection [None]

NARRATIVE: CASE EVENT DATE: 20180214
